FAERS Safety Report 21563925 (Version 1)
Quarter: 2022Q4

REPORT INFORMATION
  Report Type: Spontaneous
  Country: NO (occurrence: NO)
  Receive Date: 20221108
  Receipt Date: 20221108
  Transmission Date: 20230113
  Serious: Yes (Hospitalization)
  Sender: FDA-Public Use
  Company Number: NO-NOVOPROD-974857

PATIENT
  Sex: Female

DRUGS (3)
  1. SAXENDA [Suspect]
     Active Substance: LIRAGLUTIDE
     Dosage: 2.4 MG
  2. SAXENDA [Suspect]
     Active Substance: LIRAGLUTIDE
     Indication: Weight control
  3. SAXENDA [Suspect]
     Active Substance: LIRAGLUTIDE
     Dosage: 1.8 MG

REACTIONS (11)
  - Chest pain [Unknown]
  - Dyspnoea [Unknown]
  - Burning sensation [Unknown]
  - Renal pain [Unknown]
  - Urine ketone body present [Unknown]
  - Colitis [Unknown]
  - Abnormal loss of weight [Unknown]
  - Palpitations [Unknown]
  - Fatigue [Unknown]
  - Nausea [Unknown]
  - Off label use [Unknown]
